FAERS Safety Report 6098973-7 (Version None)
Quarter: 2009Q1

REPORT INFORMATION
  Report Type: 
  Country: None (occurrence: None)
  Receive Date: 20090302
  Receipt Date: 20090218
  Transmission Date: 20090719
  Serious: Yes (Other)
  Sender: FDA-Public Use
  Company Number: US-PFIZER INC-2009174788

PATIENT
  Sex: Male
  Weight: 90.264 kg

DRUGS (1)
  1. CHANTIX [Suspect]
     Indication: SMOKING CESSATION THERAPY
     Dates: start: 20090211, end: 20090214

REACTIONS (4)
  - ASTHENIA [None]
  - DIZZINESS [None]
  - PAIN [None]
  - RHABDOMYOLYSIS [None]
